FAERS Safety Report 6091642-9 (Version None)
Quarter: 2009Q1

REPORT INFORMATION
  Report Type: 
  Country: None (occurrence: None)
  Receive Date: 20090225
  Receipt Date: 20080319
  Transmission Date: 20090719
  Serious: No
  Sender: FDA-Public Use
  Company Number: A0716427A

PATIENT
  Sex: Female

DRUGS (6)
  1. VALTREX [Suspect]
     Indication: HERPES ZOSTER
     Dosage: 500MG PER DAY
     Route: 048
     Dates: start: 20070901, end: 20080301
  2. TRAZODONE HCL [Concomitant]
  3. CITALOPRAM HYDROBROMIDE [Concomitant]
  4. PROTONIX [Concomitant]
  5. IMODIUM [Concomitant]
  6. BENADRYL [Concomitant]

REACTIONS (1)
  - ALOPECIA [None]
